FAERS Safety Report 25975528 (Version 1)
Quarter: 2025Q4

REPORT INFORMATION
  Report Type: Spontaneous
  Country: US (occurrence: None)
  Receive Date: 20251029
  Receipt Date: 20251029
  Transmission Date: 20260118
  Serious: Yes (Hospitalization)
  Sender: FDA-CTU
  Company Number: None

PATIENT
  Sex: Female

DRUGS (11)
  1. NUCALA [Suspect]
     Active Substance: MEPOLIZUMAB
     Indication: Pancreatitis chronic
     Dosage: FREQUENCY : MONTHLY;?
     Route: 058
     Dates: start: 20211218
  2. ALBUTEROL AER HFA [Concomitant]
  3. ALBUTEROL SULFATE [Concomitant]
     Active Substance: ALBUTEROL SULFATE
  4. ASPIRIN [Concomitant]
     Active Substance: ASPIRIN
  5. AUG BETAMET CRE 0.05% [Concomitant]
  6. BIDIL TAB [Concomitant]
  7. BUMETANIDE TAB 1MG [Concomitant]
  8. CLONIDINE TAB 0.1 MG ER [Concomitant]
  9. FAMOTIDINE [Concomitant]
     Active Substance: FAMOTIDINE
  10. FAMOTIDINE TAB 40MG [Concomitant]
  11. FLUTIC/SALME AER 500/50 [Concomitant]

REACTIONS (3)
  - Condition aggravated [None]
  - Pancreatitis chronic [None]
  - Quality of life decreased [None]
